FAERS Safety Report 19641418 (Version 2)
Quarter: 2021Q3

REPORT INFORMATION
  Report Type: Spontaneous
  Country: CO (occurrence: CO)
  Receive Date: 20210730
  Receipt Date: 20210901
  Transmission Date: 20211014
  Serious: Yes (Other)
  Sender: FDA-Public Use
  Company Number: CO-AMGEN-COLSP2021113771

PATIENT
  Age: 47 Year
  Sex: Male

DRUGS (12)
  1. ALIZAPRIDA [Concomitant]
     Indication: ANTIEMETIC SUPPORTIVE CARE
     Dosage: 50 MILLIGRAM, Q8H FOR 15 DAYS
     Route: 048
     Dates: start: 20210708
  2. IRINOTECAN [Concomitant]
     Active Substance: IRINOTECAN
     Indication: ADENOCARCINOMA OF COLON
     Dosage: 381.6 MILLIGRAM, QD
     Route: 042
     Dates: start: 20210629
  3. ONDANSETRON [Concomitant]
     Active Substance: ONDANSETRON
     Indication: ADENOCARCINOMA OF COLON
     Dosage: 16 MILLIGRAM, QD
     Route: 042
     Dates: start: 20210629
  4. FOSAPREPITANT [Concomitant]
     Active Substance: FOSAPREPITANT
     Indication: ADENOCARCINOMA OF COLON
     Dosage: 150 MILLIGRAM, QD
     Route: 042
     Dates: start: 20210629
  5. ATROPINE SULFATE. [Concomitant]
     Active Substance: ATROPINE SULFATE
     Indication: ADENOCARCINOMA OF COLON
     Dosage: 1 MILLIGRAM PER MILLILITRE, QD
     Route: 030
     Dates: start: 20210629
  6. CALCIUM FOLINATE [Concomitant]
     Active Substance: LEUCOVORIN CALCIUM
     Indication: ADENOCARCINOMA OF COLON
     Dosage: 848 MILLIGRAM, QD
     Route: 042
     Dates: start: 20210629
  7. DEXAMETHASONE PHOSPHATE [Concomitant]
     Active Substance: DEXAMETHASONE PHOSPHATE
     Indication: ADENOCARCINOMA OF COLON
     Dosage: 16 MILLIGRAM, QD
     Route: 042
     Dates: start: 20210629
  8. FLUOROURACIL. [Concomitant]
     Active Substance: FLUOROURACIL
     Indication: ADENOCARCINOMA OF COLON
     Dosage: 5088 MILLIGRAM, QD
     Route: 042
     Dates: start: 20210629
  9. FOLFOX [Concomitant]
     Active Substance: FLUOROURACIL\LEUCOVORIN CALCIUM\OXALIPLATIN
     Dosage: UNK
     Dates: start: 202004
  10. MVASI [Suspect]
     Active Substance: BEVACIZUMAB-AWWB
     Indication: ADENOCARCINOMA OF COLON
     Dosage: 450 MILLIGRAM, QD
     Route: 042
     Dates: start: 202004
  11. MIRTAZAPINE. [Concomitant]
     Active Substance: MIRTAZAPINE
     Indication: ANTIDEPRESSANT THERAPY
     Dosage: 30 MILLIGRAM, QD
     Route: 048
     Dates: start: 20210511
  12. LOPERAMIDE HYDROCHLORIDE. [Concomitant]
     Active Substance: LOPERAMIDE HYDROCHLORIDE
     Indication: ANTIDIARRHOEAL SUPPORTIVE CARE
     Dosage: 2 MILLIGRAM, Q6H FOR 15 DAYS
     Route: 048
     Dates: start: 20210708

REACTIONS (12)
  - Intentional product misuse [Unknown]
  - Nausea [Not Recovered/Not Resolved]
  - Asthenia [Unknown]
  - Arrhythmia [Recovered/Resolved]
  - Blood calcium decreased [Unknown]
  - Diarrhoea [Not Recovered/Not Resolved]
  - Heart rate increased [Recovered/Resolved]
  - Blood pressure systolic increased [Recovered/Resolved]
  - Decreased appetite [Unknown]
  - Metastases to liver [Unknown]
  - Nystagmus [Recovered/Resolved]
  - Speech disorder [Recovered/Resolved]

NARRATIVE: CASE EVENT DATE: 2020
